FAERS Safety Report 12267640 (Version 1)
Quarter: 2016Q2

REPORT INFORMATION
  Report Type: Spontaneous
  Country: NO (occurrence: NO)
  Receive Date: 20160414
  Receipt Date: 20160414
  Transmission Date: 20160815
  Serious: Yes (Death, Other)
  Sender: FDA-Public Use
  Company Number: NO-GLAXOSMITHKLINE-NO2016GSK048299

PATIENT
  Sex: Male

DRUGS (1)
  1. NICOTINELL [Suspect]
     Active Substance: NICOTINE
     Indication: EX-TOBACCO USER
     Dosage: UNK
     Route: 065

REACTIONS (3)
  - Death [Fatal]
  - Intentional product misuse [Unknown]
  - Intentional product use issue [Unknown]
